FAERS Safety Report 8336067-8 (Version None)
Quarter: 2012Q1

REPORT INFORMATION
  Report Type: 
  Country: None (occurrence: None)
  Receive Date: 20120329
  Receipt Date: 20090928
  Transmission Date: 20120608
  Serious: Yes (Hospitalization, Other)
  Sender: FDA-Public Use
  Company Number: PHEH2009US05266

PATIENT
  Age: 78 Year
  Sex: Female
  Weight: 110 kg

DRUGS (8)
  1. EXELON [Suspect]
     Indication: DEMENTIA
     Dosage: 9.5 MG, TRANSDERMAL, 4.6 MG, TRANSDERMAL, 4.6 MG, QOD
     Route: 062
  2. TRANDOLAPRIL [Concomitant]
  3. LUNESTA [Concomitant]
  4. MIACALCIN [Concomitant]
  5. NASONEX [Concomitant]
  6. ALPRAZOLAM [Concomitant]
  7. SINGULAIR [Concomitant]
  8. NAMENDA [Concomitant]

REACTIONS (10)
  - APPLICATION SITE PRURITUS [None]
  - CONFUSIONAL STATE [None]
  - NAUSEA [None]
  - HYPONATRAEMIA [None]
  - VOMITING [None]
  - URINARY TRACT INFECTION [None]
  - APPLICATION SITE RASH [None]
  - DRUG INTOLERANCE [None]
  - BONE DISORDER [None]
  - APPLICATION SITE ERYTHEMA [None]
